FAERS Safety Report 9556873 (Version 1)
Quarter: 2013Q3

REPORT INFORMATION
  Report Type: Spontaneous
  Country: US (occurrence: None)
  Receive Date: 20130724
  Receipt Date: 20130724
  Transmission Date: 20140515
  Serious: Yes (Other)
  Sender: FDA-Public Use
  Company Number: PHEH2013US008003

PATIENT
  Age: 45 Year
  Sex: Female

DRUGS (1)
  1. GILENYA [Suspect]
     Route: 048
     Dates: start: 201301

REACTIONS (7)
  - Gastrooesophageal reflux disease [None]
  - Regurgitation [None]
  - Chest pain [None]
  - Oedema peripheral [None]
  - Nausea [None]
  - Gait disturbance [None]
  - Dizziness [None]
